FAERS Safety Report 17814402 (Version 2)
Quarter: 2023Q2

REPORT INFORMATION
  Report Type: Report from Study
  Country: ES (occurrence: None)
  Receive Date: 20200522
  Receipt Date: 20230606
  Transmission Date: 20230722
  Serious: Yes (Hospitalization)
  Sender: FDA-Public Use
  Company Number: ES-ROCHE-2599993

PATIENT
  Sex: Female
  Weight: 76.9 kg

DRUGS (8)
  1. ATEZOLIZUMAB [Suspect]
     Active Substance: ATEZOLIZUMAB
     Indication: Cervix carcinoma
     Dosage: LAST DOSE ADMINISTERED ON 08/JUN/2020
     Route: 042
     Dates: start: 20200427, end: 20200427
  2. BEVACIZUMAB [Suspect]
     Active Substance: BEVACIZUMAB
     Indication: Cervix carcinoma
     Dosage: LAST DOSE ADMINISTERED ON 08/JUN/2020
     Route: 042
     Dates: start: 20200427, end: 20200427
  3. CARBOPLATIN [Suspect]
     Active Substance: CARBOPLATIN
     Indication: Cervix carcinoma
     Dosage: LAST DOSE ADMINISTERED ON 08/JUN/2020
     Route: 042
     Dates: start: 20200427, end: 20200427
  4. PACLITAXEL [Suspect]
     Active Substance: PACLITAXEL
     Indication: Cervix carcinoma
     Dosage: LAST DOSE ADMINISTERED ON 08/JUN/2020
     Route: 042
     Dates: start: 20200427, end: 20200427
  5. CEFTRIAXONE [Concomitant]
     Active Substance: CEFTRIAXONE
     Indication: Pyrexia
     Route: 042
     Dates: start: 20200505, end: 20200505
  6. CEFIXIME [Concomitant]
     Active Substance: CEFIXIME
     Indication: Pyrexia
     Route: 048
     Dates: start: 20200506, end: 20200506
  7. TRYPTIZOL [Concomitant]
     Active Substance: AMITRIPTYLINE HYDROCHLORIDE
     Indication: Tension headache
     Route: 048
  8. LORAZEPAM [Concomitant]
     Active Substance: LORAZEPAM
     Indication: Tension headache
     Route: 048

REACTIONS (4)
  - Febrile neutropenia [Recovered/Resolved]
  - Skin toxicity [Recovered/Resolved]
  - Rash maculo-papular [Recovered/Resolved]
  - Infusion related reaction [Recovered/Resolved]

NARRATIVE: CASE EVENT DATE: 20200506
